FAERS Safety Report 15058591 (Version 3)
Quarter: 2019Q1

REPORT INFORMATION
  Report Type: Report from Study
  Country: ES (occurrence: ES)
  Receive Date: 20180625
  Receipt Date: 20190207
  Transmission Date: 20190417
  Serious: Yes (Death, Hospitalization)
  Sender: FDA-Public Use
  Company Number: PHHY2018ES025528

PATIENT
  Age: 58 Year
  Sex: Male
  Weight: 68.2 kg

DRUGS (6)
  1. LENVATINIB [Suspect]
     Active Substance: LENVATINIB
     Dosage: 10 MG, QD
     Route: 048
     Dates: start: 20180221, end: 20180327
  2. LENVATINIB [Suspect]
     Active Substance: LENVATINIB
     Indication: RENAL CANCER
     Dosage: 14 MG, QD
     Route: 048
     Dates: start: 20180104, end: 20180215
  3. LENVATINIB [Suspect]
     Active Substance: LENVATINIB
     Dosage: 10 MG, UNK
     Route: 048
     Dates: start: 20180612, end: 2018
  4. EVEROLIMUS. [Suspect]
     Active Substance: EVEROLIMUS
     Dosage: 5 MG, QD (DAILY) (1 IN 1 D)
     Route: 048
     Dates: start: 20180612, end: 2018
  5. EVEROLIMUS. [Suspect]
     Active Substance: EVEROLIMUS
     Indication: RENAL CANCER
     Dosage: 5 MG, QD (DAILY) (1 IN 1 D)
     Route: 048
     Dates: start: 20180104, end: 20180517
  6. LENVATINIB [Suspect]
     Active Substance: LENVATINIB
     Dosage: 14 MG, QD
     Route: 048
     Dates: start: 20180401, end: 20180517

REACTIONS (10)
  - Pneumothorax [Fatal]
  - Neuralgia [Recovered/Resolved]
  - Lipase increased [Recovered/Resolved]
  - Oedema peripheral [Recovered/Resolved]
  - Paraesthesia [Unknown]
  - Fracture pain [Recovered/Resolved]
  - Amylase increased [Recovered/Resolved]
  - Fractured sacrum [Unknown]
  - Fall [Unknown]
  - Product dispensing error [Unknown]

NARRATIVE: CASE EVENT DATE: 20180327
